FAERS Safety Report 8010428-9 (Version None)
Quarter: 2011Q4

REPORT INFORMATION
  Report Type: 
  Country: None (occurrence: None)
  Receive Date: 20111222
  Receipt Date: 20111214
  Transmission Date: 20120403
  Serious: Yes (Hospitalization, Other)
  Sender: FDA-Public Use
  Company Number: 2011MA017701

PATIENT
  Sex: Male

DRUGS (8)
  1. ALCOHOL [Concomitant]
  2. FUROSEMIDE [Concomitant]
  3. LORAZEPAM [Suspect]
     Dosage: 1MG;PRN;PO
     Route: 048
  4. DIGOXIN [Concomitant]
  5. WARFARIN SODIUM [Concomitant]
  6. ACETAMINOPHEN [Concomitant]
  7. SERTRALINE HYDROCHLORIDE [Concomitant]
  8. POTASSIUM [Concomitant]

REACTIONS (2)
  - FALL [None]
  - SUBDURAL HAEMATOMA [None]
